FAERS Safety Report 8970766 (Version 1)
Quarter: 2012Q4

REPORT INFORMATION
  Report Type: 
  Country: AU (occurrence: AU)
  Receive Date: 20121217
  Receipt Date: 20121217
  Transmission Date: 20130627
  Serious: No
  Sender: FDA-Public Use
  Company Number: AU-009507513-1212AUS005006

PATIENT
  Age: 2 Year

DRUGS (1)
  1. ELOCON [Suspect]

REACTIONS (1)
  - Incorrect route of drug administration [Unknown]
